FAERS Safety Report 10869499 (Version 3)
Quarter: 2015Q2

REPORT INFORMATION
  Report Type: Spontaneous
  Country: ME (occurrence: ME)
  Receive Date: 20150226
  Receipt Date: 20150622
  Transmission Date: 20150821
  Serious: Yes (Hospitalization)
  Sender: FDA-Public Use
  Company Number: PHHY2015ME018679

PATIENT
  Age: 10 Year
  Sex: Female
  Weight: 31 kg

DRUGS (3)
  1. OSPAMOX [Suspect]
     Active Substance: AMOXICILLIN
     Indication: PYREXIA
  2. LENDACIN [Concomitant]
     Active Substance: CEFTRIAXONE SODIUM
     Indication: PRODUCT USED FOR UNKNOWN INDICATION
     Route: 065
  3. OSPAMOX [Suspect]
     Active Substance: AMOXICILLIN
     Indication: INFLUENZA
     Dosage: 1500 MG, QD (HALF TABLET PER EIGHT HOURS)
     Route: 048

REACTIONS (5)
  - Nausea [Unknown]
  - Headache [Unknown]
  - Vomiting [Unknown]
  - Seizure [Unknown]
  - Epilepsy [Unknown]
